FAERS Safety Report 15814623 (Version 1)
Quarter: 2019Q1

REPORT INFORMATION
  Report Type: Spontaneous
  Country: US (occurrence: US)
  Receive Date: 20190111
  Receipt Date: 20190111
  Transmission Date: 20190417
  Serious: Yes (Other)
  Sender: FDA-Public Use
  Company Number: US-REGENERON PHARMACEUTICALS, INC.-2019-10664

PATIENT

DRUGS (4)
  1. EYLEA [Suspect]
     Active Substance: AFLIBERCEPT
     Dosage: SECOND INJECTION, 4 WEEKS AFTER THE FIRST INJECTION
     Route: 031
     Dates: start: 20181219
  2. LASIX [Concomitant]
     Active Substance: FUROSEMIDE
     Indication: FLUID RETENTION
     Dosage: 20 MG, MONTHLY
     Dates: start: 2018
  3. LASIX [Concomitant]
     Active Substance: FUROSEMIDE
     Dosage: 40 MG
     Dates: start: 201901
  4. EYLEA [Suspect]
     Active Substance: AFLIBERCEPT
     Indication: NEOVASCULAR AGE-RELATED MACULAR DEGENERATION
     Dosage: UNK
     Route: 031
     Dates: start: 201811

REACTIONS (7)
  - Hypertension [Not Recovered/Not Resolved]
  - Fear of injection [Unknown]
  - Malaise [Unknown]
  - Confusional state [Unknown]
  - Influenza [Unknown]
  - Dysphonia [Unknown]
  - Pain [Unknown]

NARRATIVE: CASE EVENT DATE: 201811
